FAERS Safety Report 4367442-4 (Version None)
Quarter: 2004Q2

REPORT INFORMATION
  Report Type: 
  Country: None (occurrence: None)
  Receive Date: 20040528
  Receipt Date: 20040528
  Transmission Date: 20050107
  Serious: Yes (Disabling, Other)
  Sender: FDA-Public Use
  Company Number: None

PATIENT
  Age: 55 Year
  Sex: Female
  Weight: 113.3993 kg

DRUGS (9)
  1. HUMIRA [Suspect]
     Indication: RHEUMATOID ARTHRITIS
     Dosage: 2 DOSES
  2. PREDNISONE [Concomitant]
  3. METFORMIN [Concomitant]
  4. PIOGLITAZONE HCL [Concomitant]
  5. INSULIN [Concomitant]
  6. ATORVASTATIN CALCIUM [Concomitant]
  7. LISINOPRIL [Concomitant]
  8. METHOTREXATE [Concomitant]
  9. SERTRALINE [Concomitant]

REACTIONS (1)
  - NEUROPATHY PERIPHERAL [None]
